FAERS Safety Report 6144247-5 (Version None)
Quarter: 2009Q2

REPORT INFORMATION
  Report Type: 
  Country: None (occurrence: None)
  Receive Date: 20090406
  Receipt Date: 20090331
  Transmission Date: 20091009
  Serious: Yes (Hospitalization)
  Sender: FDA-Public Use
  Company Number: PHBS2007JP15093

PATIENT
  Sex: Female

DRUGS (5)
  1. AREDIA [Suspect]
     Indication: METASTASES TO BONE
     Dosage: 90 MG, UNK
     Route: 042
     Dates: start: 20050406, end: 20060801
  2. ZOMETA [Suspect]
     Indication: METASTASES TO BONE
     Route: 042
     Dates: start: 20060801, end: 20070401
  3. TAXOL [Concomitant]
     Indication: METASTASES TO BONE
     Route: 042
     Dates: start: 20050323, end: 20060216
  4. NAVELBINE [Concomitant]
     Indication: METASTASES TO BONE
     Route: 042
     Dates: start: 20060406, end: 20060428
  5. XELODA [Concomitant]
     Indication: METASTASES TO BONE
     Route: 042
     Dates: start: 20060905, end: 20061001

REACTIONS (14)
  - BACTERIAL INFECTION [None]
  - BONE DISORDER [None]
  - DENTAL CARE [None]
  - DENTAL OPERATION [None]
  - GINGIVAL ATROPHY [None]
  - GINGIVAL PAIN [None]
  - HYPERBARIC OXYGEN THERAPY [None]
  - MOUTH ULCERATION [None]
  - NEUTROPHIL PERCENTAGE INCREASED [None]
  - OSTEOMYELITIS [None]
  - OSTEONECROSIS [None]
  - RESORPTION BONE INCREASED [None]
  - SEQUESTRECTOMY [None]
  - TOOTH EXTRACTION [None]
